FAERS Safety Report 8453902-3 (Version None)
Quarter: 2012Q2

REPORT INFORMATION
  Report Type: 
  Country: None (occurrence: None)
  Receive Date: 20120620
  Receipt Date: 20120612
  Transmission Date: 20120825
  Serious: No
  Sender: FDA-Public Use
  Company Number: JP-ABBOTT-12P-087-0937421-00

PATIENT
  Age: 60 Year
  Sex: Female

DRUGS (3)
  1. FENOFIBRATE [Suspect]
     Route: 048
     Dates: start: 20120507, end: 20120508
  2. FENOFIBRATE [Suspect]
     Indication: HYPERLIPIDAEMIA
     Dosage: 80 MILLIGRAM DAILY
     Route: 048
     Dates: start: 20120501, end: 20120502
  3. FENOFIBRATE [Suspect]
     Route: 048
     Dates: start: 20120514, end: 20120515

REACTIONS (1)
  - ECZEMA [None]
